FAERS Safety Report 17052466 (Version 1)
Quarter: 2019Q4

REPORT INFORMATION
  Report Type: Spontaneous
  Country: SE (occurrence: SE)
  Receive Date: 20191120
  Receipt Date: 20191120
  Transmission Date: 20200122
  Serious: Yes (Hospitalization, Other)
  Sender: FDA-Public Use
  Company Number: SE-SA-2019SA316690

PATIENT
  Age: 23 Year
  Sex: Female

DRUGS (6)
  1. PALEXIA [Suspect]
     Active Substance: TAPENTADOL HYDROCHLORIDE
     Dosage: 450 MG, UNK
     Route: 048
     Dates: start: 20180601, end: 20180601
  2. ZOLPIDEM TARTRATE. [Suspect]
     Active Substance: ZOLPIDEM TARTRATE
     Dosage: 120 MG, UNK
     Route: 048
     Dates: start: 20180601, end: 20180601
  3. PREGABALIN. [Suspect]
     Active Substance: PREGABALIN
     Dosage: 300 MG, UNK
     Route: 048
     Dates: start: 20180601, end: 20180601
  4. DIAZEPAM. [Suspect]
     Active Substance: DIAZEPAM
     Dosage: 10 MG, UNK
     Route: 048
     Dates: start: 20180601, end: 20180601
  5. PROMETHAZINE HYDROCHLORIDE. [Suspect]
     Active Substance: PROMETHAZINE HYDROCHLORIDE
     Dosage: 150 MG, UNK
     Route: 048
     Dates: start: 20180601, end: 20180601
  6. PROPAVAN [Suspect]
     Active Substance: PROPIOMAZINE
     Dosage: 75 MG, UNK
     Route: 048
     Dates: start: 20180601, end: 20180601

REACTIONS (3)
  - Mydriasis [Unknown]
  - Intentional overdose [Unknown]
  - Intentional self-injury [Unknown]

NARRATIVE: CASE EVENT DATE: 20180601
